FAERS Safety Report 22199280 (Version 1)
Quarter: 2023Q2

REPORT INFORMATION
  Report Type: Spontaneous
  Country: GB (occurrence: GB)
  Receive Date: 20230411
  Receipt Date: 20230411
  Transmission Date: 20230721
  Serious: No
  Sender: FDA-Public Use
  Company Number: None

PATIENT

DRUGS (1)
  1. QUETIAPINE FUMARATE [Suspect]
     Active Substance: QUETIAPINE FUMARATE
     Indication: Adverse drug reaction
     Dosage: 300 MILLIGRAM (TWO TABLETS AT NIGHT)
     Route: 065

REACTIONS (2)
  - Medication error [Unknown]
  - Somnolence [Recovered/Resolved]
